FAERS Safety Report 5933175-3 (Version None)
Quarter: 2008Q4

REPORT INFORMATION
  Report Type: 
  Country: None (occurrence: None)
  Receive Date: 20081028
  Receipt Date: 20081017
  Transmission Date: 20090506
  Serious: Yes (Hospitalization)
  Sender: FDA-Public Use
  Company Number: US-BAXTER-2007BH005647

PATIENT
  Age: 34 Year
  Sex: Female

DRUGS (10)
  1. ENDOXAN BAXTER [Suspect]
     Indication: COLORECTAL CANCER
     Route: 042
     Dates: start: 20070220, end: 20070220
  2. ENDOXAN BAXTER [Suspect]
     Route: 042
     Dates: start: 20070306, end: 20070507
  3. ZYC300 [Suspect]
     Indication: COLORECTAL CANCER
     Route: 030
     Dates: start: 20070223, end: 20070510
  4. OXYCODONE HCL [Concomitant]
     Indication: DRUG USE FOR UNKNOWN INDICATION
     Route: 065
  5. ROBITUSSIN A-C /OLD FORM/ [Concomitant]
     Indication: DRUG USE FOR UNKNOWN INDICATION
     Dosage: DOSE UNIT:UNKNOWN
     Route: 065
  6. HYDROCODONE BITARTRATE [Concomitant]
     Indication: DRUG USE FOR UNKNOWN INDICATION
     Dosage: DOSE UNIT:UNKNOWN
     Route: 065
  7. HOMATROPINE [Concomitant]
     Indication: DRUG USE FOR UNKNOWN INDICATION
     Dosage: DOSE UNIT:UNKNOWN
     Route: 065
  8. REGLAN [Concomitant]
     Indication: DRUG USE FOR UNKNOWN INDICATION
     Dosage: DOSE UNIT:UNKNOWN
     Route: 065
  9. COMPAZINE [Concomitant]
     Indication: DRUG USE FOR UNKNOWN INDICATION
     Dosage: DOSE UNIT:UNKNOWN
     Route: 065
  10. CEPHALEXIN [Concomitant]
     Indication: DRUG USE FOR UNKNOWN INDICATION
     Route: 048

REACTIONS (8)
  - DEHYDRATION [None]
  - FALL [None]
  - HAEMATOMA [None]
  - HYPERTENSION [None]
  - NAUSEA [None]
  - SINUS TACHYCARDIA [None]
  - SYNCOPE [None]
  - VOMITING [None]
